FAERS Safety Report 5222914-5 (Version None)
Quarter: 2007Q1

REPORT INFORMATION
  Report Type: 
  Country: None (occurrence: None)
  Receive Date: 20070129
  Receipt Date: 20070117
  Transmission Date: 20070707
  Serious: Yes (Other)
  Sender: FDA-Public Use
  Company Number: US-PFIZER INC-2007005169

PATIENT
  Sex: Female
  Weight: 102.1 kg

DRUGS (7)
  1. LYRICA [Suspect]
     Indication: DIABETIC NEUROPATHY
  2. LYRICA [Suspect]
     Indication: NEURALGIA
  3. LYRICA [Suspect]
     Indication: PAIN
  4. ANTICOAGULANTS [Concomitant]
  5. TRAZODONE HCL [Concomitant]
     Indication: INSOMNIA
  6. TRAZODONE HCL [Concomitant]
     Indication: DEPRESSION
  7. RANITIDINE [Concomitant]

REACTIONS (16)
  - ARTHRITIS [None]
  - CEREBROVASCULAR ACCIDENT [None]
  - CORONARY ARTERY OCCLUSION [None]
  - DYSPHONIA [None]
  - ECCHYMOSIS [None]
  - EYELID PTOSIS [None]
  - FALL [None]
  - HEAD INJURY [None]
  - HYPERTENSION [None]
  - HYPOAESTHESIA [None]
  - INCORRECT DOSE ADMINISTERED [None]
  - INSOMNIA [None]
  - MYALGIA [None]
  - ROTATOR CUFF SYNDROME [None]
  - SOMNOLENCE [None]
  - THIRST [None]
